FAERS Safety Report 7568232-1 (Version None)
Quarter: 2011Q2

REPORT INFORMATION
  Report Type: 
  Country: None (occurrence: None)
  Receive Date: 20110617
  Receipt Date: 20110608
  Transmission Date: 20111010
  Serious: Yes (Other)
  Sender: FDA-Public Use
  Company Number: MC201100263

PATIENT
  Age: 42 Year
  Sex: Male

DRUGS (6)
  1. HEPARIN [Suspect]
     Indication: ANGIOPLASTY
     Dosage: 2500 UT
  2. ABCIXIMAB (ABCIXIMAB) [Suspect]
     Indication: ANGIOPLASTY
     Dosage: SEE IMAGE
     Route: 040
  3. CLOPIDOGREL [Concomitant]
  4. PRASUGREL (PRASUGREL) [Concomitant]
  5. ANGIOMAX [Suspect]
     Indication: CORONARY ARTERIAL STENT INSERTION
     Dosage: 0.75 MG/KG, BOLUS
     Route: 040
  6. ASPIRIN [Concomitant]

REACTIONS (5)
  - HEPARIN-INDUCED THROMBOCYTOPENIA [None]
  - THROMBOCYTOPENIA [None]
  - CORONARY ARTERY STENOSIS [None]
  - ACUTE MYOCARDIAL INFARCTION [None]
  - BUNDLE BRANCH BLOCK RIGHT [None]
